FAERS Safety Report 6479453-3 (Version None)
Quarter: 2009Q4

REPORT INFORMATION
  Report Type: 
  Country: None (occurrence: None)
  Receive Date: 20091123
  Receipt Date: 20090814
  Transmission Date: 20100525
  Serious: No
  Sender: FDA-Public Use
  Company Number: 8050464

PATIENT
  Age: 50 Year
  Sex: Female

DRUGS (1)
  1. CIMZIA [Suspect]
     Dosage: 400 MG SC
     Route: 058
     Dates: start: 20090724

REACTIONS (5)
  - ARTHRALGIA [None]
  - HEADACHE [None]
  - INJECTION SITE PAIN [None]
  - LYMPHADENOPATHY [None]
  - OROPHARYNGEAL PAIN [None]
